FAERS Safety Report 6366349-0 (Version None)
Quarter: 2009Q3

REPORT INFORMATION
  Report Type: 
  Country: None (occurrence: None)
  Receive Date: 20090915
  Receipt Date: 20090907
  Transmission Date: 20100115
  Serious: Yes (Congenital Anomaly)
  Sender: FDA-Public Use
  Company Number: 2009AL005872

PATIENT

DRUGS (3)
  1. PHENOBARBITAL TAB [Suspect]
     Indication: MATERNAL DRUGS AFFECTING FOETUS
     Dosage: TRPL
     Route: 064
  2. TOPIRAMATE [Concomitant]
  3. LAMOTRIGINE [Concomitant]

REACTIONS (6)
  - CLEFT LIP [None]
  - CLEFT PALATE [None]
  - HIP DYSPLASIA [None]
  - MATERNAL DRUGS AFFECTING FOETUS [None]
  - PLAGIOCEPHALY [None]
  - TORTICOLLIS [None]
